FAERS Safety Report 9651006 (Version 2)
Quarter: 2013Q4

REPORT INFORMATION
  Report Type: Spontaneous
  Country: JP (occurrence: JP)
  Receive Date: 20131029
  Receipt Date: 20131104
  Transmission Date: 20140711
  Serious: Yes (Other)
  Sender: FDA-Public Use
  Company Number: PHHY2013JP121198

PATIENT
  Age: 51 Year
  Sex: Male

DRUGS (2)
  1. GLIVEC [Suspect]
     Indication: CHRONIC MYELOID LEUKAEMIA
     Dosage: UNK UKN, UNK
     Route: 048
  2. ZYLORIC [Suspect]
     Dosage: UNK UKN, UNK
     Route: 048

REACTIONS (1)
  - Bone formation decreased [Not Recovered/Not Resolved]
